FAERS Safety Report 11870720 (Version 1)
Quarter: 2015Q4

REPORT INFORMATION
  Report Type: Spontaneous
  Country: US (occurrence: None)
  Receive Date: 20151223
  Receipt Date: 20151223
  Transmission Date: 20160305
  Serious: Yes (Disabling)
  Sender: FDA-Public Use
  Company Number: None

PATIENT
  Age: 48 Year
  Sex: Female

DRUGS (6)
  1. OXYCODONE [Concomitant]
     Active Substance: OXYCODONE
  2. FENTANYL TRANSDERMAL SYSTEM [Concomitant]
     Active Substance: FENTANYL
  3. ESTROGEN [Concomitant]
     Active Substance: ESTRONE\SUS SCROFA OVARY
  4. GABAPENTIN. [Concomitant]
     Active Substance: GABAPENTIN
  5. CIPRO [Suspect]
     Active Substance: CIPROFLOXACIN HYDROCHLORIDE
     Indication: URINARY TRACT INFECTION
     Dosage: 1 OR 2 PILL A DAY I THINK
     Route: 048
     Dates: start: 20070710, end: 20150711
  6. VALIUM [Concomitant]
     Active Substance: DIAZEPAM

REACTIONS (17)
  - Syncope [None]
  - Tremor [None]
  - Abnormal behaviour [None]
  - Drug hypersensitivity [None]
  - Joint crepitation [None]
  - Feeling abnormal [None]
  - Pain [None]
  - Abdominal pain upper [None]
  - Mental disorder [None]
  - Connective tissue disorder [None]
  - Gastric disorder [None]
  - Fatigue [None]
  - Joint stiffness [None]
  - Muscular weakness [None]
  - Arthropathy [None]
  - Stress [None]
  - Unevaluable event [None]

NARRATIVE: CASE EVENT DATE: 20070717
